FAERS Safety Report 7948249-5 (Version None)
Quarter: 2011Q4

REPORT INFORMATION
  Report Type: 
  Country: None (occurrence: None)
  Receive Date: 20111130
  Receipt Date: 20111121
  Transmission Date: 20120403
  Serious: Yes (Hospitalization)
  Sender: FDA-Public Use
  Company Number: JP-ASTRAZENECA-2011SE45739

PATIENT
  Age: 28804 Day
  Sex: Male

DRUGS (19)
  1. DILTIAZEM HCL [Concomitant]
     Indication: HYPERTENSION
     Route: 048
     Dates: start: 20110311
  2. DOXAZOSIN MESYLATE [Concomitant]
     Indication: HYPERTENSION
     Route: 048
     Dates: start: 20110614
  3. XALATAN [Concomitant]
     Indication: GLAUCOMA
     Route: 047
  4. UNISIA [Concomitant]
     Indication: HYPERTENSION
     Route: 048
     Dates: start: 20110409
  5. LEVOFLOXACIN [Concomitant]
     Indication: HORDEOLUM
     Route: 047
     Dates: start: 20110426
  6. OFLOXACIN [Concomitant]
     Indication: HORDEOLUM
     Route: 047
     Dates: start: 20110426
  7. COSOPT [Concomitant]
     Indication: GLAUCOMA
     Route: 047
  8. DIOVAN [Concomitant]
     Indication: HYPERTENSION
     Route: 048
     Dates: start: 20110314
  9. NITROGLYCERIN [Concomitant]
     Indication: ANGINA UNSTABLE
     Dosage: AS REQUIRED
     Route: 048
     Dates: start: 20110320
  10. PLAVIX [Suspect]
     Indication: ACUTE CORONARY SYNDROME
     Dosage: TWO TIMES A DAY
     Route: 048
     Dates: start: 20110311
  11. ASPIRIN [Suspect]
     Indication: ACUTE CORONARY SYNDROME
     Route: 048
     Dates: start: 20110311
  12. OPALMON [Concomitant]
     Indication: LUMBAR SPINAL STENOSIS
     Route: 048
  13. RADEN [Concomitant]
     Indication: GASTRITIS PROPHYLAXIS
     Route: 048
  14. STUDY PROCEDURE [Suspect]
     Indication: ACUTE CORONARY SYNDROME
     Route: 065
  15. LIVALO [Concomitant]
     Indication: DYSLIPIDAEMIA
     Route: 048
     Dates: start: 20110311
  16. SIGMART [Concomitant]
     Indication: ANGINA UNSTABLE
     Route: 048
     Dates: start: 20110311
  17. CARTEOLOL HYDROCHLORIDE [Concomitant]
     Indication: HORDEOLUM
     Route: 047
  18. PLACEBO [Suspect]
     Indication: ACUTE CORONARY SYNDROME
     Dosage: DAILY
     Route: 048
     Dates: start: 20110311
  19. CONIEL [Concomitant]
     Indication: HYPERTENSION
     Route: 048
     Dates: start: 20110313

REACTIONS (1)
  - IN-STENT CORONARY ARTERY RESTENOSIS [None]
